FAERS Safety Report 6702694-4 (Version None)
Quarter: 2010Q2

REPORT INFORMATION
  Report Type: 
  Country: None (occurrence: None)
  Receive Date: 20100429
  Receipt Date: 20100414
  Transmission Date: 20101027
  Serious: No
  Sender: FDA-Public Use
  Company Number: AU-GENENTECH-299902

PATIENT
  Sex: Female

DRUGS (3)
  1. LUCENTIS [Suspect]
     Indication: MACULAR DEGENERATION
     Dosage: .05 ML, 1/MONTH
     Route: 031
     Dates: start: 20090801
  2. BETADINE [Suspect]
     Indication: DRUG USE FOR UNKNOWN INDICATION
  3. CHLORHEXIDINE GLUCONATE [Suspect]
     Indication: DRUG USE FOR UNKNOWN INDICATION
     Route: 065

REACTIONS (5)
  - EYE INFLAMMATION [None]
  - EYE PAIN [None]
  - LACRIMATION INCREASED [None]
  - OCULAR HYPERAEMIA [None]
  - ULCERATIVE KERATITIS [None]
